FAERS Safety Report 7554896-5 (Version None)
Quarter: 2011Q2

REPORT INFORMATION
  Report Type: 
  Country: None (occurrence: None)
  Receive Date: 20110615
  Receipt Date: 20110615
  Transmission Date: 20111010
  Serious: No
  Sender: FDA-Public Use
  Company Number: None

PATIENT
  Age: 70 Year
  Sex: Male
  Weight: 118.2 kg

DRUGS (1)
  1. LISINOPRIL [Suspect]
     Indication: RENAL DISORDER
     Dosage: 2.5 MG EVERY DAY PO
     Route: 048
     Dates: start: 20110518, end: 20110612

REACTIONS (1)
  - ANGIOEDEMA [None]
